FAERS Safety Report 12747809 (Version 2)
Quarter: 2017Q1

REPORT INFORMATION
  Report Type: Spontaneous
  Country: US (occurrence: US)
  Receive Date: 20160915
  Receipt Date: 20170209
  Transmission Date: 20170428
  Serious: No
  Sender: FDA-Public Use
  Company Number: US-JAZZ-2016-US-010056

PATIENT
  Sex: Female

DRUGS (27)
  1. SULFASALAZINE. [Concomitant]
     Active Substance: SULFASALAZINE
  2. LEXAPRO [Concomitant]
     Active Substance: ESCITALOPRAM OXALATE
  3. OMEPRAZOLE. [Concomitant]
     Active Substance: OMEPRAZOLE
  4. OPANA [Concomitant]
     Active Substance: OXYMORPHONE HYDROCHLORIDE
  5. XANAX [Concomitant]
     Active Substance: ALPRAZOLAM
  6. DOXEPIN [Concomitant]
     Active Substance: DOXEPIN
  7. XYREM [Suspect]
     Active Substance: SODIUM OXYBATE
     Dosage: 4.5 G, BID
     Route: 048
     Dates: start: 201410
  8. NABUMETONE. [Concomitant]
     Active Substance: NABUMETONE
  9. PREVACID [Concomitant]
     Active Substance: LANSOPRAZOLE
  10. PERCOCET [Concomitant]
     Active Substance: ACETAMINOPHEN\OXYCODONE HYDROCHLORIDE
  11. PHENERGAN [Concomitant]
     Active Substance: PROMETHAZINE HYDROCHLORIDE
  12. LIDOCAINE. [Concomitant]
     Active Substance: LIDOCAINE
  13. OXYCODONE AND ACETAMINOPHEN [Concomitant]
     Active Substance: ACETAMINOPHEN\OXYCODONE HYDROCHLORIDE
  14. XYREM [Suspect]
     Active Substance: SODIUM OXYBATE
     Dosage: DOSE ADJUSTMENTS
     Route: 048
  15. ABILIFY [Concomitant]
     Active Substance: ARIPIPRAZOLE
  16. VALIUM [Concomitant]
     Active Substance: DIAZEPAM
  17. TRAZODONE HYDROCHLORIDE. [Concomitant]
     Active Substance: TRAZODONE HYDROCHLORIDE
  18. XYREM [Suspect]
     Active Substance: SODIUM OXYBATE
     Indication: SOMNOLENCE
     Dosage: 2.25 G, BID
     Route: 048
     Dates: start: 201408, end: 201408
  19. VOLTAREN [Concomitant]
     Active Substance: DICLOFENAC SODIUM
  20. TOPIRAMATE. [Concomitant]
     Active Substance: TOPIRAMATE
  21. WELLBUTRIN [Concomitant]
     Active Substance: BUPROPION HYDROCHLORIDE
  22. LYRICA [Concomitant]
     Active Substance: PREGABALIN
  23. MS CONTIN [Concomitant]
     Active Substance: MORPHINE SULFATE
  24. DIAZEPAM. [Concomitant]
     Active Substance: DIAZEPAM
  25. TOPAMAX [Concomitant]
     Active Substance: TOPIRAMATE
  26. PROVIGIL [Concomitant]
     Active Substance: MODAFINIL
  27. BISOPROLOL FUMARATE AND HYDROCHLOROTHIAZIDE [Concomitant]
     Active Substance: BISOPROLOL FUMARATE\HYDROCHLOROTHIAZIDE

REACTIONS (1)
  - Blood pressure increased [Recovering/Resolving]
